FAERS Safety Report 8155105-9 (Version None)
Quarter: 2012Q1

REPORT INFORMATION
  Report Type: 
  Country: None (occurrence: None)
  Receive Date: 20120221
  Receipt Date: 20120210
  Transmission Date: 20120608
  Serious: Yes (Hospitalization)
  Sender: FDA-Public Use
  Company Number: PHHY2012JP008936

PATIENT
  Sex: Female

DRUGS (11)
  1. PREDNISOLONE [Concomitant]
     Indication: STILL'S DISEASE ADULT ONSET
  2. CYCLOPHOSPHAMIDE [Concomitant]
     Route: 042
  3. AMPHOTERICIN B [Concomitant]
     Indication: PNEUMOCYSTIS JIROVECI PNEUMONIA
  4. CEFPIROME [Concomitant]
  5. CILNIDIPINE [Concomitant]
  6. SODIUM POLYSTYRENE SULFONATE [Concomitant]
     Route: 048
  7. CYCLOSPORINE [Suspect]
     Indication: STILL'S DISEASE ADULT ONSET
     Dosage: 140 MG, UNK
     Route: 048
     Dates: start: 20090101
  8. CYCLOSPORINE [Suspect]
     Dosage: 100 MG, UNK
     Route: 048
  9. AMLODIPINE [Concomitant]
  10. PENTAMIDINE [Concomitant]
  11. IRBESARTAN [Concomitant]

REACTIONS (7)
  - PNEUMOCYSTIS JIROVECI PNEUMONIA [None]
  - RENAL FAILURE ACUTE [None]
  - STILL'S DISEASE ADULT ONSET [None]
  - ASPERGILLOSIS [None]
  - HYPERTENSION [None]
  - PYREXIA [None]
  - CONDITION AGGRAVATED [None]
